FAERS Safety Report 5615282-8 (Version None)
Quarter: 2008Q1

REPORT INFORMATION
  Report Type: 
  Country: None (occurrence: None)
  Receive Date: 20080206
  Receipt Date: 20080130
  Transmission Date: 20080703
  Serious: Yes (Other)
  Sender: FDA-Public Use
  Company Number: PHNR2008AU00478

PATIENT
  Sex: Female

DRUGS (1)
  1. SYNTOCINON [Suspect]

REACTIONS (1)
  - POSTPARTUM HAEMORRHAGE [None]
